FAERS Safety Report 5071511-3 (Version None)
Quarter: 2006Q3

REPORT INFORMATION
  Report Type: 
  Country: None (occurrence: None)
  Receive Date: 20060714
  Receipt Date: 20060602
  Transmission Date: 20061208
  Serious: No
  Sender: FDA-Public Use
  Company Number: 2006SP002298

PATIENT
  Age: 82 Year
  Sex: Male
  Weight: 70.3075 kg

DRUGS (6)
  1. LUNESTA [Suspect]
     Indication: INSOMNIA
     Dosage: 2 MG; ORAL
     Route: 048
     Dates: start: 20060305
  2. VICODIN [Concomitant]
  3. PLAVIX [Concomitant]
  4. VALSARTAN [Concomitant]
  5. NAMENDA [Concomitant]
  6. EXELON [Concomitant]

REACTIONS (1)
  - INSOMNIA [None]
